FAERS Safety Report 12706623 (Version 1)
Quarter: 2016Q3

REPORT INFORMATION
  Report Type: Spontaneous
  Country: PL (occurrence: PL)
  Receive Date: 20160901
  Receipt Date: 20160901
  Transmission Date: 20161109
  Serious: Yes (Other)
  Sender: FDA-Public Use
  Company Number: PL-SUN PHARMACEUTICAL INDUSTRIES LTD-2016RR-122293

PATIENT
  Age: 19 Year
  Sex: Female

DRUGS (6)
  1. LAMOTRIGINE. [Suspect]
     Active Substance: LAMOTRIGINE
     Indication: STATUS EPILEPTICUS
     Dosage: UNK
     Route: 065
  2. PHENOBARBITAL. [Suspect]
     Active Substance: PHENOBARBITAL
     Indication: STATUS EPILEPTICUS
     Dosage: UNK
     Route: 065
  3. VALPROIC ACID. [Suspect]
     Active Substance: VALPROIC ACID
     Indication: STATUS EPILEPTICUS
     Dosage: UNK
     Route: 048
  4. THIOPENTAL [Concomitant]
     Active Substance: THIOPENTAL
     Indication: COMA
     Dosage: UNK
     Route: 065
  5. LEVETIRACETAM. [Suspect]
     Active Substance: LEVETIRACETAM
     Indication: STATUS EPILEPTICUS
     Dosage: UNK
     Route: 065
  6. LACOSAMIDE. [Suspect]
     Active Substance: LACOSAMIDE
     Indication: STATUS EPILEPTICUS
     Dosage: UNK
     Route: 065

REACTIONS (1)
  - Drug resistance [Unknown]
